FAERS Safety Report 17544519 (Version 1)
Quarter: 2020Q1

REPORT INFORMATION
  Report Type: Spontaneous
  Country: DE (occurrence: DE)
  Receive Date: 20200316
  Receipt Date: 20200316
  Transmission Date: 20200409
  Serious: Yes (Other)
  Sender: FDA-Public Use
  Company Number: DE-PFIZER INC-2020105902

PATIENT
  Age: 31 Year
  Sex: Female
  Weight: 74 kg

DRUGS (3)
  1. CYTOTEC [Suspect]
     Active Substance: MISOPROSTOL
     Indication: UTERINE HYPOTONUS
  2. CYTOTEC [Suspect]
     Active Substance: MISOPROSTOL
     Indication: LABOUR INDUCTION
     Dosage: UNK
     Route: 065
     Dates: start: 20190508, end: 20190508
  3. CYTOTEC [Suspect]
     Active Substance: MISOPROSTOL
     Indication: OBSTRUCTED LABOUR

REACTIONS (5)
  - Product use in unapproved indication [Unknown]
  - Uterine pain [Not Recovered/Not Resolved]
  - Off label use [Unknown]
  - Premature separation of placenta [Recovered/Resolved]
  - Uterine haemorrhage [Recovered/Resolved]

NARRATIVE: CASE EVENT DATE: 20190508
